FAERS Safety Report 10390292 (Version 2)
Quarter: 2015Q1

REPORT INFORMATION
  Report Type: Spontaneous
  Country: US (occurrence: US)
  Receive Date: 20140818
  Receipt Date: 20150326
  Transmission Date: 20150720
  Serious: No
  Sender: FDA-Public Use
  Company Number: US-PFIZER INC-2014225316

PATIENT
  Age: 63 Year
  Sex: Male

DRUGS (2)
  1. SUTENT [Suspect]
     Active Substance: SUNITINIB MALATE
     Dosage: 50 MG, DAILY CYCLIC (2 WEEKS ON AND 1 WEEK OFF)
     Dates: start: 20140727
  2. SUTENT [Suspect]
     Active Substance: SUNITINIB MALATE
     Dosage: 37.5 MG, UNK

REACTIONS (13)
  - Fatigue [Unknown]
  - Nausea [Unknown]
  - Night sweats [Unknown]
  - Pyrexia [Unknown]
  - Influenza like illness [Unknown]
  - Cough [Unknown]
  - Epistaxis [Unknown]
  - Asthenia [Unknown]
  - Arthralgia [Unknown]
  - Body temperature fluctuation [Unknown]
  - Viral infection [Unknown]
  - Dysphonia [Unknown]
  - Bedridden [Unknown]

NARRATIVE: CASE EVENT DATE: 20140808
